FAERS Safety Report 22870633 (Version 3)
Quarter: 2023Q4

REPORT INFORMATION
  Report Type: Spontaneous
  Country: JP (occurrence: JP)
  Receive Date: 20230828
  Receipt Date: 20231203
  Transmission Date: 20240110
  Serious: Yes (Hospitalization)
  Sender: FDA-Public Use
  Company Number: JP-TAKEDA-2023TJP011180

PATIENT
  Age: 20 Year
  Sex: Male

DRUGS (2)
  1. FEIBA NF [Suspect]
     Active Substance: ANTI-INHIBITOR COAGULANT COMPLEX
     Indication: Factor X deficiency
     Dosage: 1000 INTERNATIONAL UNIT, 1/WEEK
     Route: 042
  2. FEIBA NF [Suspect]
     Active Substance: ANTI-INHIBITOR COAGULANT COMPLEX
     Indication: Haemostasis

REACTIONS (7)
  - Fall [Unknown]
  - Traumatic haemorrhage [Recovering/Resolving]
  - COVID-19 [Unknown]
  - Off label use [Unknown]
  - Product preparation issue [Unknown]
  - Off label use [Unknown]
  - Product container issue [Unknown]

NARRATIVE: CASE EVENT DATE: 20230725
